FAERS Safety Report 12876744 (Version 1)
Quarter: 2016Q4

REPORT INFORMATION
  Report Type: Spontaneous
  Country: US (occurrence: US)
  Receive Date: 20161021
  Receipt Date: 20161021
  Transmission Date: 20170207
  Serious: No
  Sender: FDA-Public Use
  Company Number: None

PATIENT
  Age: 55 Year
  Sex: Male

DRUGS (1)
  1. COTELLIC [Suspect]
     Active Substance: COBIMETINIB
     Indication: MALIGNANT MELANOMA
     Dosage: 3 TABLETS DAILY FOR 21 DAYS ONE ORAL
     Dates: start: 20160523

REACTIONS (1)
  - Visual field defect [None]

NARRATIVE: CASE EVENT DATE: 20160916
